FAERS Safety Report 23194696 (Version 1)
Quarter: 2023Q4

REPORT INFORMATION
  Report Type: Spontaneous
  Country: US (occurrence: US)
  Receive Date: 20231117
  Receipt Date: 20231117
  Transmission Date: 20240110
  Serious: No
  Sender: FDA-Public Use
  Company Number: US-drreddys-SPO/USA/23/0180533

PATIENT
  Age: 55 Year
  Sex: Female

DRUGS (1)
  1. ZENATANE [Suspect]
     Active Substance: ISOTRETINOIN
     Indication: Acne
     Dosage: RMA ISSUE DATE: 24 MAY 2023 09:23:24 AM, 23 JUNE 2023 10:39:07 AM, 25 JULY 2023 10:38:29 AM, 25 AUGU

REACTIONS (1)
  - Therapy cessation [Unknown]
